FAERS Safety Report 6105471-0 (Version None)
Quarter: 2009Q1

REPORT INFORMATION
  Report Type: 
  Country: None (occurrence: None)
  Receive Date: 20090306
  Receipt Date: 20090302
  Transmission Date: 20090719
  Serious: Yes (Other)
  Sender: FDA-Public Use
  Company Number: A0770736A

PATIENT
  Age: 45 Year
  Sex: Female

DRUGS (6)
  1. RELENZA [Suspect]
     Dosage: 2PUFF TWICE PER DAY
     Route: 055
     Dates: start: 20090223, end: 20090225
  2. COMBIVENT [Concomitant]
     Indication: DRUG USE FOR UNKNOWN INDICATION
     Route: 065
  3. ATIVAN [Concomitant]
     Indication: ANXIETY
     Dosage: 2MG FOUR TIMES PER DAY
     Route: 065
  4. NEXIUM [Concomitant]
     Dosage: 40MG PER DAY
     Route: 065
  5. METOPROLOL TARTRATE [Concomitant]
     Dosage: 25MG AT NIGHT
     Route: 065
  6. CRESTOR [Concomitant]
     Indication: BLOOD CHOLESTEROL INCREASED
     Dosage: 5MG AT NIGHT
     Route: 065

REACTIONS (1)
  - ASTHMA [None]
